FAERS Safety Report 14567964 (Version 1)
Quarter: 2018Q1

REPORT INFORMATION
  Report Type: Other
  Country: SE (occurrence: SE)
  Receive Date: 20180223
  Receipt Date: 20180223
  Transmission Date: 20180509
  Serious: Yes (Hospitalization)
  Sender: FDA-Public Use
  Company Number: SE-CELLTRION INC.-2018SE018048

PATIENT

DRUGS (3)
  1. REMSIMA [Suspect]
     Active Substance: INFLIXIMAB
     Dosage: 200 MG
     Route: 065
     Dates: start: 20170706, end: 20170706
  2. REMSIMA [Suspect]
     Active Substance: INFLIXIMAB
     Indication: SPONDYLITIS
     Dosage: 200 MG
     Route: 065
     Dates: start: 20170614, end: 20170614
  3. METHOTREXATE. [Concomitant]
     Active Substance: METHOTREXATE
     Dosage: 25 MG
     Dates: start: 20170403

REACTIONS (4)
  - Cardiac failure [Recovered/Resolved]
  - Atrial fibrillation [Recovered/Resolved]
  - Inappropriate schedule of drug administration [Unknown]
  - Peripheral swelling [Recovered/Resolved]

NARRATIVE: CASE EVENT DATE: 20170601
